FAERS Safety Report 7315901-4 (Version None)
Quarter: 2011Q1

REPORT INFORMATION
  Report Type: 
  Country: None (occurrence: None)
  Receive Date: 20110217
  Receipt Date: 20110217
  Transmission Date: 20110831
  Serious: Yes (Hospitalization)
  Sender: FDA-Public Use
  Company Number: None

PATIENT
  Age: 80 Year
  Sex: Male
  Weight: 78.9 kg

DRUGS (2)
  1. GEMFIBROZIL [Suspect]
     Indication: HYPERLIPIDAEMIA
     Dosage: 600 MG BID PO
     Route: 048
     Dates: start: 20080819, end: 20101225
  2. SIMVASTATIN [Suspect]
     Indication: HYPERLIPIDAEMIA
     Dosage: 80 MG AT BEDTIME PO
     Route: 048
     Dates: start: 20060125, end: 20101225

REACTIONS (1)
  - ASTHENIA [None]
